FAERS Safety Report 25929961 (Version 1)
Quarter: 2025Q4

REPORT INFORMATION
  Report Type: Spontaneous
  Country: UA (occurrence: UA)
  Receive Date: 20251016
  Receipt Date: 20251016
  Transmission Date: 20260118
  Serious: Yes (Death)
  Sender: MYLAN
  Company Number: UA-MYLANLABS-2025M1088169

PATIENT
  Age: 55 Year
  Sex: Male

DRUGS (2)
  1. PRETOMANID [Suspect]
     Active Substance: PRETOMANID
     Indication: Disseminated tuberculosis
     Dosage: 200 MILLIGRAM, QD
     Dates: start: 20250912, end: 20250916
  2. BEDAQUILINE [Suspect]
     Active Substance: BEDAQUILINE
     Indication: Disseminated tuberculosis
     Dosage: 200 MILLIGRAM, 3XW
     Dates: start: 20250912, end: 20250916

REACTIONS (1)
  - Death [Fatal]

NARRATIVE: CASE EVENT DATE: 20250916
